FAERS Safety Report 5095180-1 (Version None)
Quarter: 2006Q3

REPORT INFORMATION
  Report Type: 
  Country: None (occurrence: None)
  Receive Date: 20060901
  Receipt Date: 20030501
  Transmission Date: 20061208
  Serious: Yes (Other)
  Sender: FDA-Public Use
  Company Number: US-GLAXOSMITHKLINE-A0607361A

PATIENT
  Sex: Female
  Weight: 86.4 kg

DRUGS (2)
  1. LOTRONEX [Suspect]
     Indication: DIARRHOEA
     Dosage: 1MG TWICE PER DAY
     Route: 048
     Dates: start: 20000101
  2. DITROPAN [Concomitant]

REACTIONS (4)
  - ABDOMINAL PAIN [None]
  - COLITIS [None]
  - DIVERTICULUM [None]
  - GASTROINTESTINAL INJURY [None]
